FAERS Safety Report 8533263 (Version 3)
Quarter: 2013Q4

REPORT INFORMATION
  Report Type: Spontaneous
  Country: US (occurrence: US)
  Receive Date: 20120427
  Receipt Date: 20131112
  Transmission Date: 20140711
  Serious: Yes (Other)
  Sender: FDA-Public Use
  Company Number: US-BAYER-2012-039628

PATIENT
  Age: 34 Year
  Sex: Female
  Weight: 65.76 kg

DRUGS (17)
  1. YAZ [Suspect]
     Indication: ACNE
     Dosage: UNK
     Dates: start: 20071222, end: 20080429
  2. YAZ [Suspect]
     Indication: CONTRACEPTION
  3. YAZ [Suspect]
     Indication: PREMENSTRUAL SYNDROME
  4. TOPAMAX [Concomitant]
     Indication: MIGRAINE
     Dosage: UNK
     Dates: start: 2007, end: 2011
  5. AMERGE [Concomitant]
     Indication: MIGRAINE
     Dosage: UNK
     Dates: start: 2007, end: 2011
  6. DEPAKOTE [Concomitant]
     Dosage: UNK
     Dates: start: 2007, end: 2011
  7. INDERAL [Concomitant]
     Dosage: UNK
     Dates: start: 2007, end: 2011
  8. NORTRIPTYLINE [Concomitant]
     Dosage: UNK
     Dates: start: 2007, end: 2011
  9. BOTOX [Concomitant]
     Dosage: UNK
     Dates: start: 2007, end: 2011
  10. NAPROXEN SODIUM [Concomitant]
     Indication: ANALGESIC THERAPY
     Dosage: UNK
     Dates: start: 2007
  11. VITAMIN C [Concomitant]
     Dosage: UNK
  12. PROZAC [Concomitant]
     Indication: DEPRESSION
     Dosage: UNK
     Dates: start: 2007, end: 2011
  13. PROPANOLOL [Concomitant]
     Indication: MIGRAINE
     Dosage: UNK
     Dates: start: 2007
  14. HERBAL PREPARATION [Concomitant]
     Dosage: UNK
  15. ENTEX [Concomitant]
  16. Z-PAK [Concomitant]
  17. PROMETHAZINE - CODEINE [CODEINE PHOSPHATE,PROMETHAZINE HYDROCHLORI [Concomitant]

REACTIONS (6)
  - Deep vein thrombosis [Recovering/Resolving]
  - Injury [Recovering/Resolving]
  - Pain [Recovering/Resolving]
  - Pain [None]
  - Anxiety [None]
  - Fear [None]
